FAERS Safety Report 25233608 (Version 1)
Quarter: 2025Q2

REPORT INFORMATION
  Report Type: Spontaneous
  Country: US (occurrence: US)
  Receive Date: 20250424
  Receipt Date: 20250424
  Transmission Date: 20250717
  Serious: Yes (Other)
  Sender: EMCURE PHARMACEUTICALS LTD
  Company Number: US-AVET LIFESCIENCES LTD-2025-AVET-000111

PATIENT
  Sex: Female

DRUGS (1)
  1. PRAMIPEXOLE DIHYDROCHLORIDE [Suspect]
     Active Substance: PRAMIPEXOLE DIHYDROCHLORIDE
     Indication: Parkinson^s disease
     Route: 065

REACTIONS (6)
  - Gestational diabetes [Unknown]
  - Foetal hypokinesia [Unknown]
  - Meconium in amniotic fluid [Unknown]
  - Exposure during pregnancy [Unknown]
  - Pyrexia [Unknown]
  - Gestational hypertension [Unknown]
